FAERS Safety Report 24838683 (Version 1)
Quarter: 2025Q1

REPORT INFORMATION
  Report Type: Report from Study
  Country: US (occurrence: US)
  Receive Date: 20250113
  Receipt Date: 20250113
  Transmission Date: 20250409
  Serious: Yes (Other)
  Sender: ABBVIE
  Company Number: US-ABBVIE-6080410

PATIENT
  Age: 53 Year
  Sex: Male

DRUGS (1)
  1. HUMIRA [Suspect]
     Active Substance: ADALIMUMAB
     Indication: Psoriasis
     Route: 058
     Dates: start: 20201027

REACTIONS (5)
  - Intraocular pressure test abnormal [Not Recovered/Not Resolved]
  - Aphonia [Recovering/Resolving]
  - Sinus congestion [Recovering/Resolving]
  - COVID-19 [Recovering/Resolving]
  - Lower respiratory tract congestion [Recovering/Resolving]

NARRATIVE: CASE EVENT DATE: 20241225
